FAERS Safety Report 6165032-4 (Version None)
Quarter: 2009Q2

REPORT INFORMATION
  Report Type: 
  Country: None (occurrence: None)
  Receive Date: 20090423
  Receipt Date: 20090323
  Transmission Date: 20091009
  Serious: No
  Sender: FDA-Public Use
  Company Number: US-BAYER-200916614NA

PATIENT

DRUGS (1)
  1. AVELOX [Suspect]
     Indication: DRUG USE FOR UNKNOWN INDICATION
     Route: 042

REACTIONS (4)
  - INFUSION SITE REACTION [None]
  - INJECTION SITE URTICARIA [None]
  - VENIPUNCTURE SITE SWELLING [None]
  - VESSEL PUNCTURE SITE REACTION [None]
